FAERS Safety Report 6755673-5 (Version None)
Quarter: 2010Q2

REPORT INFORMATION
  Report Type: 
  Country: None (occurrence: None)
  Receive Date: 20100604
  Receipt Date: 20100526
  Transmission Date: 20101027
  Serious: Yes (Other)
  Sender: FDA-Public Use
  Company Number: CA-TEVA-236129USA

PATIENT
  Age: 65 Year
  Sex: Female

DRUGS (3)
  1. BISOPROLOL FUMARATE [Suspect]
     Indication: TACHYCARDIA
     Route: 048
  2. BISOPROLOL FUMARATE [Suspect]
     Indication: PALPITATIONS
  3. LORAZEPAM [Concomitant]

REACTIONS (2)
  - PSORIASIS [None]
  - SUICIDAL IDEATION [None]
